FAERS Safety Report 7276344-5 (Version None)
Quarter: 2011Q1

REPORT INFORMATION
  Report Type: 
  Country: None (occurrence: None)
  Receive Date: 20110204
  Receipt Date: 20110127
  Transmission Date: 20110831
  Serious: Yes (Other)
  Sender: FDA-Public Use
  Company Number: US-US-EMD SERONO, INC.-7011820

PATIENT
  Sex: Male
  Weight: 88 kg

DRUGS (3)
  1. REBIF [Suspect]
     Indication: MULTIPLE SCLEROSIS
     Dates: start: 20070101
  2. REBIF [Suspect]
  3. STEROIDS [Suspect]
     Indication: MULTIPLE SCLEROSIS

REACTIONS (2)
  - DIABETES MELLITUS [None]
  - FALL [None]
